FAERS Safety Report 22600111 (Version 1)
Quarter: 2023Q2

REPORT INFORMATION
  Report Type: Spontaneous
  Country: CN (occurrence: CN)
  Receive Date: 20230614
  Receipt Date: 20230614
  Transmission Date: 20230722
  Serious: Yes (Hospitalization, Other)
  Sender: FDA-Public Use
  Company Number: CN-PFIZER INC-PV202300103406

PATIENT
  Age: 92 Year
  Sex: Male
  Weight: 45 kg

DRUGS (1)
  1. NIRMATRELVIR\RITONAVIR [Suspect]
     Active Substance: NIRMATRELVIR\RITONAVIR
     Indication: Antiviral treatment
     Dosage: 300 MG, 2X/DAY
     Route: 048
     Dates: start: 20230524, end: 20230528

REACTIONS (2)
  - Renal impairment [Recovering/Resolving]
  - Heart rate decreased [Recovering/Resolving]

NARRATIVE: CASE EVENT DATE: 20230528
